FAERS Safety Report 14303702 (Version 1)
Quarter: 2017Q4

REPORT INFORMATION
  Report Type: Spontaneous
  Country: US (occurrence: US)
  Receive Date: 20171219
  Receipt Date: 20171219
  Transmission Date: 20180321
  Serious: Yes (Other)
  Sender: FDA-Public Use
  Company Number: US-OTSUKA-2016_026985

PATIENT
  Age: 22 Year
  Sex: Male

DRUGS (3)
  1. ABILIFY [Suspect]
     Active Substance: ARIPIPRAZOLE
     Dosage: 5 MG, UNK
     Route: 048
  2. ABILIFY MAINTENA [Suspect]
     Active Substance: ARIPIPRAZOLE
     Indication: PRODUCT USED FOR UNKNOWN INDICATION
     Dosage: 400 MG, QMO
     Route: 030
     Dates: start: 20161104
  3. ABILIFY [Suspect]
     Active Substance: ARIPIPRAZOLE
     Indication: PRODUCT USED FOR UNKNOWN INDICATION
     Dosage: 10 MG, UNK
     Route: 048
     Dates: start: 20160411

REACTIONS (10)
  - Mania [Unknown]
  - Suicidal ideation [Recovering/Resolving]
  - Feeling cold [Recovering/Resolving]
  - Attention deficit/hyperactivity disorder [Unknown]
  - Urinary retention [Unknown]
  - Fatigue [Unknown]
  - Insomnia [Unknown]
  - Substance abuse [Unknown]
  - Psychotic disorder [Unknown]
  - Anxiety [Unknown]
